FAERS Safety Report 11054197 (Version 1)
Quarter: 2015Q2

REPORT INFORMATION
  Report Type: Spontaneous
  Country: US (occurrence: None)
  Receive Date: 20150420
  Receipt Date: 20150420
  Transmission Date: 20150821
  Serious: No
  Sender: FDA-Public Use
  Company Number: 2015-00039

PATIENT
  Age: 45 Year
  Sex: Male
  Weight: 136.08 kg

DRUGS (2)
  1. NONSTEROIDAL ANTI-INFLAMMATORY DRUG (NSAID) [Concomitant]
  2. ZICAM EXTREME CONGESTION RELIEF [Suspect]
     Active Substance: OXYMETAZOLINE HYDROCHLORIDE
     Indication: NASAL CONGESTION
     Dosage: 1-2 SPRAYS NASALLY TWICE DAILY
     Route: 045
     Dates: start: 20150411, end: 20150412

REACTIONS (2)
  - Ageusia [None]
  - Anosmia [None]

NARRATIVE: CASE EVENT DATE: 20150412
